FAERS Safety Report 20781079 (Version 2)
Quarter: 2022Q4

REPORT INFORMATION
  Report Type: Report from Study
  Country: DE (occurrence: DE)
  Receive Date: 20220504
  Receipt Date: 20221019
  Transmission Date: 20230113
  Serious: Yes (Hospitalization, Other)
  Sender: FDA-Public Use
  Company Number: DE-BAYER-2022A059848

PATIENT
  Age: 43 Year
  Sex: Female

DRUGS (1)
  1. VENTAVIS [Suspect]
     Active Substance: ILOPROST
     Indication: Pulmonary arterial hypertension
     Dosage: INHALATION, V10
     Route: 055
     Dates: start: 20211104

REACTIONS (5)
  - Lung transplant [Unknown]
  - Hypotension [Unknown]
  - Nausea [Unknown]
  - Vomiting [Unknown]
  - Syncope [Unknown]

NARRATIVE: CASE EVENT DATE: 20211104
